FAERS Safety Report 15778413 (Version 2)
Quarter: 2019Q1

REPORT INFORMATION
  Report Type: Report from Study
  Country: US (occurrence: US)
  Receive Date: 20181231
  Receipt Date: 20190205
  Transmission Date: 20190417
  Serious: Yes (Hospitalization)
  Sender: FDA-Public Use
  Company Number: US-TEVA-2018-US-994166

PATIENT
  Age: 67 Year
  Sex: Female
  Weight: 74.4 kg

DRUGS (17)
  1. CELEXA [Concomitant]
     Active Substance: CITALOPRAM HYDROBROMIDE
     Route: 048
  2. CYTARABINE. [Suspect]
     Active Substance: CYTARABINE
     Indication: PLASMA CELL MYELOMA
     Route: 065
  3. ACYCLOVIR 400MG [Concomitant]
     Active Substance: ACYCLOVIR
     Dosage: 2 DOSAGE FORMS DAILY;
     Route: 048
  4. ZOFRAN 8MG [Concomitant]
     Indication: NAUSEA
     Dosage: P.O. OR SUBLINGUAL Q.8 HOURS P.R.N.
  5. MELPHALAN HYDROCHLORIDE. [Suspect]
     Active Substance: MELPHALAN HYDROCHLORIDE
     Indication: PLASMA CELL MYELOMA
     Route: 065
  6. ETOPOSIDE. [Suspect]
     Active Substance: ETOPOSIDE
     Indication: PLASMA CELL MYELOMA
     Route: 065
  7. POTASSIUM CHLORIDE ER 10MEQ [Concomitant]
     Active Substance: POTASSIUM CHLORIDE
     Dosage: 4 DOSAGE FORMS DAILY;
     Route: 048
  8. GABAPENTIN 300MG [Concomitant]
     Active Substance: GABAPENTIN
     Route: 048
  9. URSODIOL 250MG [Concomitant]
     Dosage: 2 DOSAGE FORMS DAILY;
  10. TREANDA [Suspect]
     Active Substance: BENDAMUSTINE HYDROCHLORIDE
     Indication: PLASMA CELL MYELOMA
     Dosage: 340 MILLIGRAM DAILY;
     Route: 042
     Dates: start: 20181211, end: 20181212
  11. FLUCONAZOLE 200MG [Concomitant]
     Active Substance: FLUCONAZOLE
     Route: 048
  12. BUSPIRONE 10MG [Concomitant]
     Dosage: 3 DOSAGE FORMS DAILY;
     Route: 048
  13. ATIVAN 0.5MG [Concomitant]
     Indication: NAUSEA
     Dosage: P.O. OR SUBLINGUAL Q.4 HOURS P.R.N.
  14. TRAMADOL 50MG [Concomitant]
     Active Substance: TRAMADOL
     Indication: PAIN
     Dosage: 1-2 TABLETS P.O. Q.4 HOURS P.R.N. DO NOT EXCEED 8 TABLETS IN A 24-HOUR PERIOD.
     Route: 048
  15. PEPCID 20MG [Concomitant]
     Route: 048
  16. CIPRO [Concomitant]
     Active Substance: CIPROFLOXACIN HYDROCHLORIDE
     Dosage: 2 DOSAGE FORMS DAILY;
     Route: 048
  17. LEVOTHYROXINE 88MCG [Concomitant]
     Active Substance: LEVOTHYROXINE

REACTIONS (3)
  - Diarrhoea [Recovered/Resolved]
  - Decreased appetite [Recovered/Resolved]
  - Abdominal pain [Recovered/Resolved]

NARRATIVE: CASE EVENT DATE: 20181223
